FAERS Safety Report 5076502-4 (Version None)
Quarter: 2006Q3

REPORT INFORMATION
  Report Type: 
  Country: None (occurrence: None)
  Receive Date: 20060725
  Receipt Date: 20060526
  Transmission Date: 20061208
  Serious: No
  Sender: FDA-Public Use
  Company Number: 200613799BWH

PATIENT
  Sex: Female

DRUGS (5)
  1. NEXAVAR [Suspect]
     Indication: RENAL CANCER METASTATIC
     Dosage: SEE IMAGE
     Route: 048
  2. NEXAVAR [Suspect]
     Indication: RENAL CANCER METASTATIC
     Dosage: SEE IMAGE
     Route: 048
     Dates: start: 20051201
  3. PRILOSEC [Concomitant]
  4. ARTHROTEC [Concomitant]
  5. SYNTHROID [Concomitant]

REACTIONS (2)
  - DIARRHOEA [None]
  - PALMAR-PLANTAR ERYTHRODYSAESTHESIA SYNDROME [None]
